FAERS Safety Report 6827351-5 (Version None)
Quarter: 2010Q3

REPORT INFORMATION
  Report Type: 
  Country: None (occurrence: None)
  Receive Date: 20100709
  Receipt Date: 20070110
  Transmission Date: 20110219
  Serious: No
  Sender: FDA-Public Use
  Company Number: US-PFIZER INC-2007003377

PATIENT
  Age: 51 Year
  Sex: Female
  Weight: 77.11 kg

DRUGS (10)
  1. CHANTIX [Suspect]
     Dates: start: 20060101
  2. CELEBREX [Concomitant]
     Route: 048
  3. CYMBALTA [Concomitant]
     Route: 048
  4. EFFEXOR [Concomitant]
     Route: 048
  5. LASIX [Concomitant]
     Route: 048
  6. LOVENOX [Concomitant]
  7. NEURONTIN [Concomitant]
     Route: 048
  8. MONTELUKAST SODIUM [Concomitant]
     Route: 048
  9. TYLENOL [Concomitant]
     Route: 048
  10. VALIUM [Concomitant]
     Route: 048

REACTIONS (1)
  - PAROSMIA [None]
